FAERS Safety Report 6845524-2 (Version None)
Quarter: 2010Q3

REPORT INFORMATION
  Report Type: 
  Country: None (occurrence: None)
  Receive Date: 20100713
  Receipt Date: 20100628
  Transmission Date: 20110219
  Serious: Yes (Death, Other)
  Sender: FDA-Public Use
  Company Number: MC201000200

PATIENT

DRUGS (3)
  1. ANGIOMAX [Suspect]
     Indication: ATHERECTOMY
     Dosage: 0.75 MG/KG, BOLUS, INTRAVENOUS, 1.75 MG/KG, HR FOR DURATION OF PROCEDURE, INTRAVENOUS
     Route: 042
  2. ANGIOMAX [Suspect]
     Indication: PERCUTANEOUS CORONARY INTERVENTION
     Dosage: 0.75 MG/KG, BOLUS, INTRAVENOUS, 1.75 MG/KG, HR FOR DURATION OF PROCEDURE, INTRAVENOUS
     Route: 042
  3. ASPIRIN [Concomitant]

REACTIONS (12)
  - ARTERIOVENOUS FISTULA [None]
  - BLOOD CREATINE PHOSPHOKINASE MB INCREASED [None]
  - BLOOD PRODUCT TRANSFUSION DEPENDENT [None]
  - CEREBRAL HAEMORRHAGE [None]
  - GASTROINTESTINAL HAEMORRHAGE [None]
  - HAEMATOCRIT DECREASED [None]
  - HAEMATOMA [None]
  - HAEMORRHAGE [None]
  - ISCHAEMIC STROKE [None]
  - MYOCARDIAL INFARCTION [None]
  - PROCEDURAL COMPLICATION [None]
  - VASCULAR PSEUDOANEURYSM [None]
